FAERS Safety Report 7535808-7 (Version None)
Quarter: 2011Q2

REPORT INFORMATION
  Report Type: 
  Country: None (occurrence: None)
  Receive Date: 20110609
  Receipt Date: 20110517
  Transmission Date: 20111010
  Serious: No
  Sender: FDA-Public Use
  Company Number: US-JNJFOC-20110507993

PATIENT
  Age: 33 Year
  Sex: Male

DRUGS (3)
  1. LITHIUM CARBONATE [Concomitant]
     Indication: SCHIZOAFFECTIVE DISORDER
     Route: 065
  2. INVEGA SUSTENNA [Suspect]
     Indication: SCHIZOAFFECTIVE DISORDER BIPOLAR TYPE
     Route: 030
     Dates: end: 20110101
  3. INVEGA SUSTENNA [Suspect]
     Route: 030
     Dates: start: 20100701

REACTIONS (1)
  - RASH [None]
